FAERS Safety Report 15814756 (Version 3)
Quarter: 2019Q1

REPORT INFORMATION
  Report Type: Spontaneous
  Country: US (occurrence: US)
  Receive Date: 20190111
  Receipt Date: 20190215
  Transmission Date: 20190417
  Serious: Yes (Death, Hospitalization)
  Sender: FDA-Public Use
  Company Number: US-VIFOR (INTERNATIONAL) INC.-VIT-2019-00165

PATIENT
  Sex: Male

DRUGS (3)
  1. VELTASSA [Suspect]
     Active Substance: PATIROMER
     Indication: HYPERKALAEMIA
     Route: 048
     Dates: start: 20160521
  2. VELTASSA [Suspect]
     Active Substance: PATIROMER
     Indication: ACUTE KIDNEY INJURY
  3. VELTASSA [Suspect]
     Active Substance: PATIROMER
     Indication: ACIDOSIS

REACTIONS (5)
  - Death [Fatal]
  - Fall [Unknown]
  - Blood potassium decreased [Unknown]
  - Product dose omission [Unknown]
  - Haemoglobin decreased [Recovered/Resolved]
